FAERS Safety Report 23835350 (Version 1)
Quarter: 2024Q2

REPORT INFORMATION
  Report Type: Spontaneous
  Country: JP (occurrence: JP)
  Receive Date: 20240509
  Receipt Date: 20240509
  Transmission Date: 20240715
  Serious: Yes (Other)
  Sender: FDA-Public Use
  Company Number: JP-SUN PHARMACEUTICAL INDUSTRIES LTD-2024RR-444861

PATIENT
  Age: 46 Year
  Sex: Male

DRUGS (4)
  1. GEMCITABINE [Suspect]
     Active Substance: GEMCITABINE
     Indication: Transitional cell carcinoma
     Dosage: SIX CYCLES
     Route: 065
     Dates: start: 201901
  2. GEMCITABINE [Suspect]
     Active Substance: GEMCITABINE
     Dosage: 10 COURSES
     Route: 065
  3. CISPLATIN [Suspect]
     Active Substance: CISPLATIN
     Indication: Transitional cell carcinoma
     Dosage: SIX CYCLES
     Route: 065
     Dates: start: 201901
  4. CISPLATIN [Suspect]
     Active Substance: CISPLATIN
     Dosage: 10 COURSES
     Route: 065

REACTIONS (1)
  - Condition aggravated [Unknown]
